FAERS Safety Report 9240871 (Version 1)
Quarter: 2013Q2

REPORT INFORMATION
  Report Type: Spontaneous
  Country: US (occurrence: US)
  Receive Date: 20130418
  Receipt Date: 20130418
  Transmission Date: 20140414
  Serious: Yes (Other)
  Sender: FDA-Public Use
  Company Number: US-SANOFI-AVENTIS-2013SA002284

PATIENT
  Age: 48 Year
  Sex: Female

DRUGS (4)
  1. LOVENOX [Suspect]
     Indication: THROMBOSIS
  2. LOVENOX [Suspect]
     Indication: THROMBOSIS
  3. LOVENOX [Suspect]
     Indication: THROMBOSIS
     Dates: start: 20120914, end: 20120928
  4. INTERFERON [Concomitant]

REACTIONS (5)
  - Anaemia [Unknown]
  - Onychoclasis [Unknown]
  - Injection site pain [Unknown]
  - Injection site bruising [Unknown]
  - Injection site haemorrhage [Unknown]
